FAERS Safety Report 17725454 (Version 2)
Quarter: 2020Q2

REPORT INFORMATION
  Report Type: Report from Study
  Country: DE (occurrence: DE)
  Receive Date: 20200429
  Receipt Date: 20200522
  Transmission Date: 20200714
  Serious: Yes (Other)
  Sender: FDA-Public Use
  Company Number: DE-PFIZER INC-2020162821

PATIENT
  Sex: Female

DRUGS (4)
  1. SOMATROPIN. [Suspect]
     Active Substance: SOMATROPIN
     Indication: SMALL FOR DATES BABY
     Dosage: 0.041 MG, UNK (5MG/1.5ML)
     Route: 058
     Dates: start: 20160714, end: 20191111
  2. HIZENTRA [Concomitant]
     Active Substance: HUMAN IMMUNOGLOBULIN G
     Indication: IMMUNE SYSTEM DISORDER
     Dosage: UNK
     Route: 065
     Dates: start: 20140815
  3. SOMATROPIN. [Suspect]
     Active Substance: SOMATROPIN
     Dosage: 0.041 MG, UNK (5MG/1.5ML)
     Route: 058
  4. HIZENTRA [Concomitant]
     Active Substance: HUMAN IMMUNOGLOBULIN G
     Indication: HYPOGAMMAGLOBULINAEMIA

REACTIONS (2)
  - Diabetes mellitus [Not Recovered/Not Resolved]
  - Glycosylated haemoglobin increased [Not Recovered/Not Resolved]

NARRATIVE: CASE EVENT DATE: 20180508
